FAERS Safety Report 20050425 (Version 6)
Quarter: 2022Q1

REPORT INFORMATION
  Report Type: Report from Study
  Country: US (occurrence: US)
  Receive Date: 20211109
  Receipt Date: 20220307
  Transmission Date: 20220424
  Serious: Yes (Other)
  Sender: FDA-Public Use
  Company Number: US-ABBVIE-21P-163-4153284-00

PATIENT
  Age: 72 Year
  Sex: Male
  Weight: 67.9 kg

DRUGS (8)
  1. IBRUTINIB [Suspect]
     Active Substance: IBRUTINIB
     Indication: Waldenstrom^s macroglobulinaemia
     Route: 048
     Dates: start: 20210824
  2. MAVORIXAFOR/X4P-001 [Concomitant]
     Indication: Waldenstrom^s macroglobulinaemia
     Route: 048
     Dates: start: 20210824, end: 20210920
  3. MAVORIXAFOR/X4P-001 [Concomitant]
     Route: 048
     Dates: start: 20210921, end: 20211021
  4. MAVORIXAFOR/X4P-001 [Concomitant]
     Route: 048
     Dates: start: 20211022
  5. ACETAMINOPHEN [Concomitant]
     Active Substance: ACETAMINOPHEN
     Indication: Product used for unknown indication
  6. OXYCODONE [Concomitant]
     Active Substance: OXYCODONE
     Indication: Product used for unknown indication
  7. ONDANSETRON [Concomitant]
     Active Substance: ONDANSETRON
     Indication: Product used for unknown indication
  8. MIRALAX [Concomitant]
     Active Substance: POLYETHYLENE GLYCOL 3350
     Indication: Product used for unknown indication

REACTIONS (3)
  - Otitis media [Recovered/Resolved]
  - Otitis media [Not Recovered/Not Resolved]
  - Otitis media [Not Recovered/Not Resolved]

NARRATIVE: CASE EVENT DATE: 20210928
